FAERS Safety Report 18890728 (Version 1)
Quarter: 2021Q1

REPORT INFORMATION
  Report Type: Spontaneous
  Country: US (occurrence: US)
  Receive Date: 20210215
  Receipt Date: 20210215
  Transmission Date: 20210420
  Serious: Yes (Other)
  Sender: FDA-Public Use
  Company Number: US-SA-2021SA047088

PATIENT
  Age: 71 Year
  Sex: Male

DRUGS (1)
  1. ZANTAC [Suspect]
     Active Substance: RANITIDINE HYDROCHLORIDE
     Indication: GASTRIC ULCER
     Dosage: UNK, QD
     Dates: start: 198301, end: 201401

REACTIONS (4)
  - Skin cancer [Unknown]
  - Renal cancer stage IV [Unknown]
  - Prostate cancer stage I [Unknown]
  - Bladder cancer [Unknown]

NARRATIVE: CASE EVENT DATE: 20120601
